FAERS Safety Report 13282224 (Version 1)
Quarter: 2017Q1

REPORT INFORMATION
  Report Type: Spontaneous
  Country: US (occurrence: US)
  Receive Date: 20170301
  Receipt Date: 20170301
  Transmission Date: 20170428
  Serious: Yes (Other)
  Sender: FDA-Public Use
  Company Number: US-GLAXOSMITHKLINE-US2017025444

PATIENT
  Age: 48 Year
  Sex: Male

DRUGS (1)
  1. NICORETTE [Suspect]
     Active Substance: NICOTINE
     Indication: SMOKING CESSATION THERAPY
     Dosage: 2 MG, UNK
     Dates: start: 2015

REACTIONS (3)
  - Gastrointestinal disorder [Unknown]
  - Haematochezia [Unknown]
  - Nicotine dependence [Unknown]

NARRATIVE: CASE EVENT DATE: 20170220
